FAERS Safety Report 22652133 (Version 5)
Quarter: 2024Q2

REPORT INFORMATION
  Report Type: Spontaneous
  Country: CN (occurrence: CN)
  Receive Date: 20230628
  Receipt Date: 20240508
  Transmission Date: 20240716
  Serious: Yes (Hospitalization)
  Sender: FDA-Public Use
  Company Number: CN-Merck Healthcare KGaA-2023455366

PATIENT
  Age: 75 Year
  Sex: Male
  Weight: 49 kg

DRUGS (15)
  1. ERBITUX [Suspect]
     Active Substance: CETUXIMAB
     Indication: Squamous cell carcinoma of head and neck
     Dosage: 650 MG, WEEKLY (1/W) (LOADING DOSE 400 MG/M2, WEEKLY INFUSION POSOLOGY)
     Route: 042
     Dates: start: 20230410
  2. ERBITUX [Suspect]
     Active Substance: CETUXIMAB
     Dosage: 400 MG, WEEKLY (1/W) (WEEKLY INFUSION POSOLOGY)
     Route: 042
     Dates: start: 20230417
  3. ERBITUX [Suspect]
     Active Substance: CETUXIMAB
     Dosage: 400 MG, WEEKLY (1/W)
     Route: 042
     Dates: start: 20230424
  4. ERBITUX [Suspect]
     Active Substance: CETUXIMAB
     Dosage: 390 MG, WEEKLY (1/W) (WEEKLY INFUSION POSOLOGY)
     Route: 042
     Dates: start: 20230505
  5. ERBITUX [Suspect]
     Active Substance: CETUXIMAB
     Dosage: 390 MG, WEEKLY (1/W)
     Route: 042
     Dates: start: 20230516
  6. ERBITUX [Suspect]
     Active Substance: CETUXIMAB
     Dosage: 380 MG, WEEKLY (1/W)
     Route: 042
     Dates: start: 20230523
  7. PERIPLANETA AMERICANA [Concomitant]
     Active Substance: PERIPLANETA AMERICANA
     Indication: Product used for unknown indication
     Dosage: 20 ML, OTHER
     Route: 003
     Dates: start: 20230418
  8. IRBESARTAN [Concomitant]
     Active Substance: IRBESARTAN
     Indication: Hypertension
     Dosage: 0.075 MG, BID
     Route: 048
     Dates: start: 2007
  9. DIPHENHYDRAMINE HYDROCHLORIDE [Concomitant]
     Active Substance: DIPHENHYDRAMINE HYDROCHLORIDE
     Indication: Hypersensitivity
     Dosage: 20 MG, UNK
     Route: 030
     Dates: start: 20230410, end: 20230516
  10. FAT EMULSION NOS [Concomitant]
     Active Substance: EGG PHOSPHOLIPIDS\SAFFLOWER OIL\SOYBEAN OIL
     Indication: Nutritional supplementation
     Route: 042
     Dates: start: 20230504, end: 20230506
  11. AMINO ACIDS, SOURCE UNSPECIFIED [Concomitant]
     Active Substance: AMINO ACIDS, SOURCE UNSPECIFIED
     Indication: Nutritional supplementation
     Route: 042
     Dates: start: 20230504, end: 20230506
  12. PANTOPRAZOLE SODIUM [Concomitant]
     Active Substance: PANTOPRAZOLE SODIUM
     Indication: Product used for unknown indication
     Route: 042
     Dates: start: 20230504, end: 20230506
  13. HYDROCORTISONE [Concomitant]
     Active Substance: HYDROCORTISONE
     Indication: Rash
     Dosage: MODERATE PUFF
     Route: 003
     Dates: start: 20230504
  14. DEXAMETHASONE SODIUM PHOSPHATE EIPICO [Concomitant]
     Indication: Hypersensitivity
     Route: 042
     Dates: start: 20230410, end: 20230424
  15. LIU SHEN [HERBAL NOS;MUSK;REALGAR;TOAD VENOM] [Concomitant]
     Indication: Oropharyngeal pain
     Dosage: 10 GRAIN
     Route: 048
     Dates: start: 20230310

REACTIONS (3)
  - COVID-19 [Recovered/Resolved]
  - Radiation mucositis [Recovered/Resolved]
  - Decreased appetite [Unknown]

NARRATIVE: CASE EVENT DATE: 20230508
